FAERS Safety Report 13036461 (Version 5)
Quarter: 2018Q2

REPORT INFORMATION
  Report Type: Spontaneous
  Country: US (occurrence: US)
  Receive Date: 20161216
  Receipt Date: 20180612
  Transmission Date: 20180711
  Serious: Yes (Death, Hospitalization, Other)
  Sender: FDA-Public Use
  Company Number: US-VERTEX PHARMACEUTICALS-2016-007010

PATIENT
  Age: 49 Year
  Sex: Female

DRUGS (1)
  1. ORKAMBI [Suspect]
     Active Substance: IVACAFTOR\LUMACAFTOR
     Indication: CYSTIC FIBROSIS
     Dosage: BID
     Route: 048
     Dates: start: 20150826, end: 20180131

REACTIONS (3)
  - Oesophageal carcinoma [Fatal]
  - Infective pulmonary exacerbation of cystic fibrosis [Unknown]
  - Transfusion [Unknown]

NARRATIVE: CASE EVENT DATE: 20161104
